FAERS Safety Report 6385486-8 (Version None)
Quarter: 2009Q4

REPORT INFORMATION
  Report Type: 
  Country: None (occurrence: None)
  Receive Date: 20091002
  Receipt Date: 20080922
  Transmission Date: 20100525
  Serious: No
  Sender: FDA-Public Use
  Company Number: US-ASTRAZENECA-2008UW19800

PATIENT

DRUGS (2)
  1. ARIMIDEX [Suspect]
     Route: 048
  2. AROMASIN [Suspect]

REACTIONS (1)
  - TOOTH DISORDER [None]
